APPROVED DRUG PRODUCT: LEVETIRACETAM
Active Ingredient: LEVETIRACETAM
Strength: 1GM
Dosage Form/Route: TABLET, EXTENDED RELEASE;ORAL
Application: A200475 | Product #003
Applicant: AUROBINDO PHARMA USA INC
Approved: Dec 7, 2015 | RLD: No | RS: No | Type: DISCN